FAERS Safety Report 19441572 (Version 1)
Quarter: 2021Q2

REPORT INFORMATION
  Report Type: Spontaneous
  Country: US (occurrence: US)
  Receive Date: 20210618
  Receipt Date: 20210618
  Transmission Date: 20210717
  Serious: Yes (Hospitalization)
  Sender: FDA-Public Use
  Company Number: None

PATIENT
  Age: 77 Year
  Sex: Female
  Weight: 69.1 kg

DRUGS (2)
  1. DAUNORUBICIN [Concomitant]
     Active Substance: DAUNORUBICIN
     Dates: end: 20210501
  2. CYTARABINE. [Suspect]
     Active Substance: CYTARABINE
     Dates: end: 20210609

REACTIONS (7)
  - Ejection fraction decreased [None]
  - Mitral valve incompetence [None]
  - Left ventricular dilatation [None]
  - Alanine aminotransferase increased [None]
  - Aspartate aminotransferase increased [None]
  - Tricuspid valve incompetence [None]
  - Transaminases increased [None]

NARRATIVE: CASE EVENT DATE: 20210610
